FAERS Safety Report 13006653 (Version 1)
Quarter: 2016Q4

REPORT INFORMATION
  Report Type: Spontaneous
  Country: JP (occurrence: JP)
  Receive Date: 20161207
  Receipt Date: 20161207
  Transmission Date: 20170207
  Serious: Yes (Hospitalization)
  Sender: FDA-Public Use
  Company Number: JP-FERRINGPH-2016FE06448

PATIENT

DRUGS (1)
  1. GONAX [Suspect]
     Active Substance: DEGARELIX
     Indication: PROSTATE CANCER
     Route: 058

REACTIONS (3)
  - Hypokalaemia [Unknown]
  - Hyponatraemia [Unknown]
  - Hypoglycaemia [Unknown]
